FAERS Safety Report 12395061 (Version 3)
Quarter: 2016Q3

REPORT INFORMATION
  Report Type: Report from Study
  Country: US (occurrence: US)
  Receive Date: 20160523
  Receipt Date: 20160819
  Transmission Date: 20161109
  Serious: Yes (Hospitalization)
  Sender: FDA-Public Use
  Company Number: US-ACTELION-A-US2016-134328

PATIENT
  Age: 7 Month
  Sex: Male

DRUGS (5)
  1. TRACLEER [Suspect]
     Active Substance: BOSENTAN
     Indication: PULMONARY ARTERIAL HYPERTENSION
     Dosage: 15.625 MG, QD
     Route: 048
     Dates: start: 20151223
  2. REMODULIN [Concomitant]
     Active Substance: TREPROSTINIL
  3. TRACLEER [Suspect]
     Active Substance: BOSENTAN
     Dosage: 12.5 MG, QD
     Route: 048
  4. VENTAVIS [Suspect]
     Active Substance: ILOPROST
     Indication: PULMONARY ARTERIAL HYPERTENSION
     Dosage: 1-2 MCG, TID
     Route: 055
     Dates: start: 201603
  5. SILDENAFIL. [Concomitant]
     Active Substance: SILDENAFIL
     Dosage: 4 MG, TID
     Dates: start: 201601

REACTIONS (14)
  - Pneumothorax [Recovering/Resolving]
  - Mechanical ventilation [Recovering/Resolving]
  - Nasopharyngitis [Unknown]
  - Patent ductus arteriosus repair [Recovering/Resolving]
  - Catheter site infection [Recovering/Resolving]
  - Respiratory distress [Recovering/Resolving]
  - Device breakage [Recovering/Resolving]
  - Atrial septal defect repair [Recovering/Resolving]
  - Venous repair [Recovering/Resolving]
  - Condition aggravated [Recovering/Resolving]
  - Catheter site erythema [Recovering/Resolving]
  - Pleurodesis [Recovering/Resolving]
  - Urinary tract infection [Unknown]
  - Catheter site swelling [Recovering/Resolving]

NARRATIVE: CASE EVENT DATE: 20160705
